FAERS Safety Report 15221834 (Version 2)
Quarter: 2018Q3

REPORT INFORMATION
  Report Type: Report from Study
  Country: US (occurrence: US)
  Receive Date: 20180731
  Receipt Date: 20180807
  Transmission Date: 20181010
  Serious: Yes (Other)
  Sender: FDA-Public Use
  Company Number: US-GILEAD-2018-0352698

PATIENT
  Age: 64 Year
  Sex: Female
  Weight: 92.52 kg

DRUGS (12)
  1. K?DUR [Concomitant]
     Active Substance: POTASSIUM CHLORIDE
  2. ULTRAM [Concomitant]
     Active Substance: TRAMADOL HYDROCHLORIDE
  3. NEURONTIN [Concomitant]
     Active Substance: GABAPENTIN
  4. LANTUS [Concomitant]
     Active Substance: INSULIN GLARGINE
  5. LANOXIN [Concomitant]
     Active Substance: DIGOXIN
  6. AMBRISENTAN [Suspect]
     Active Substance: AMBRISENTAN
     Indication: PULMONARY HYPERTENSION
     Dosage: 10 MG, QD
     Route: 048
     Dates: start: 20170830
  7. RIOCIGUAT. [Concomitant]
     Active Substance: RIOCIGUAT
  8. XARELTO [Concomitant]
     Active Substance: RIVAROXABAN
  9. GLUCOPHAGE [Concomitant]
     Active Substance: METFORMIN HYDROCHLORIDE
  10. ZYLOPRIM [Concomitant]
     Active Substance: ALLOPURINOL
  11. LASIX [Concomitant]
     Active Substance: FUROSEMIDE
  12. ALDACTONE [Concomitant]
     Active Substance: SPIRONOLACTONE

REACTIONS (2)
  - Peripheral swelling [Unknown]
  - Helicobacter infection [Unknown]
